FAERS Safety Report 8262317-2 (Version None)
Quarter: 2012Q2

REPORT INFORMATION
  Report Type: 
  Country: None (occurrence: None)
  Receive Date: 20120405
  Receipt Date: 20120330
  Transmission Date: 20120825
  Serious: Yes (Death)
  Sender: FDA-Public Use
  Company Number: US-CELGENEUS-163-21880-12040068

PATIENT
  Sex: Male

DRUGS (5)
  1. LORTAB [Concomitant]
     Dosage: 5 MILLIGRAM
     Route: 048
  2. WARFARIN SODIUM [Concomitant]
     Dosage: 1 MILLIGRAM
     Route: 048
  3. NEXIUM [Concomitant]
     Dosage: 20 MILLIGRAM
     Route: 048
  4. DEXAMETHASONE [Concomitant]
     Dosage: 1 MILLIGRAM
     Route: 048
  5. REVLIMID [Suspect]
     Indication: MULTIPLE MYELOMA
     Dosage: 5 MILLIGRAM
     Route: 048
     Dates: start: 20110911, end: 20120101

REACTIONS (1)
  - DEATH [None]
